FAERS Safety Report 5463235-5 (Version None)
Quarter: 2007Q3

REPORT INFORMATION
  Report Type: 
  Country: None (occurrence: None)
  Receive Date: 20070920
  Receipt Date: 20070911
  Transmission Date: 20080115
  Serious: Yes (Other)
  Sender: FDA-Public Use
  Company Number: US-JNJFOC-20070902327

PATIENT
  Sex: Male

DRUGS (6)
  1. FENTANYL [Suspect]
     Indication: PAIN
     Route: 062
  2. ZOVIRAX [Concomitant]
     Indication: HERPES VIRUS INFECTION
     Route: 048
  3. FLONASE [Concomitant]
     Indication: MULTIPLE ALLERGIES
     Dosage: 0.05 TO ONE SPRAY IN EACH NOSTRIL DAILY
     Route: 055
  4. LUMIGAN [Concomitant]
     Indication: GLAUCOMA
     Dosage: 0.05%/ ONE DAILY
     Route: 047
  5. ELESTAT [Concomitant]
     Indication: GLAUCOMA
     Route: 050
  6. PERCOCET [Concomitant]
     Indication: PAIN
     Dosage: 325/ 75 MG
     Route: 048

REACTIONS (2)
  - HYPERTENSION [None]
  - SOMNOLENCE [None]
